FAERS Safety Report 25779777 (Version 2)
Quarter: 2025Q3

REPORT INFORMATION
  Report Type: Spontaneous
  Country: US (occurrence: US)
  Receive Date: 20250909
  Receipt Date: 20250925
  Transmission Date: 20251020
  Serious: Yes (Other)
  Sender: TEVA
  Company Number: US-TEVA-VS-3368617

PATIENT
  Sex: Male

DRUGS (2)
  1. ARIPIPRAZOLE [Suspect]
     Active Substance: ARIPIPRAZOLE
     Indication: Obsessive-compulsive disorder
     Route: 065
  2. PROPRANOLOL [Suspect]
     Active Substance: PROPRANOLOL HYDROCHLORIDE
     Indication: Obsessive-compulsive disorder
     Route: 065

REACTIONS (6)
  - Erectile dysfunction [Recovering/Resolving]
  - Nausea [Recovering/Resolving]
  - Panic attack [Recovering/Resolving]
  - Off label use [Unknown]
  - Vomiting [Recovering/Resolving]
  - Alcohol intolerance [Recovering/Resolving]
